FAERS Safety Report 17847034 (Version 1)
Quarter: 2020Q2

REPORT INFORMATION
  Report Type: Spontaneous
  Country: GB (occurrence: GB)
  Receive Date: 20200601
  Receipt Date: 20200601
  Transmission Date: 20200714
  Serious: Yes (Hospitalization)
  Sender: FDA-Public Use
  Company Number: GB-PFIZER INC-2020208913

PATIENT
  Age: 79 Year
  Sex: Male

DRUGS (3)
  1. RISPERIDONE. [Suspect]
     Active Substance: RISPERIDONE
     Indication: NEUROPSYCHIATRIC SYMPTOMS
     Dosage: 500 UG, 2X/DAY
     Route: 048
     Dates: start: 20200422, end: 20200427
  2. LORAZEPAM. [Suspect]
     Active Substance: LORAZEPAM
     Indication: NEUROPSYCHIATRIC SYMPTOMS
     Dosage: UNK
  3. RISPERIDONE. [Suspect]
     Active Substance: RISPERIDONE
     Dosage: 1 MG, 2X/DAY
     Route: 048
     Dates: start: 20200428

REACTIONS (2)
  - Product use issue [Unknown]
  - Sedation complication [Unknown]
